FAERS Safety Report 12285781 (Version 1)
Quarter: 2016Q2

REPORT INFORMATION
  Report Type: Spontaneous
  Country: US (occurrence: None)
  Receive Date: 20160419
  Receipt Date: 20160419
  Transmission Date: 20160815
  Serious: Yes (Life-Threatening)
  Sender: FDA-Public Use
  Company Number: None

PATIENT
  Age: 58 Year
  Sex: Female
  Weight: 80 kg

DRUGS (3)
  1. AMITRIPTYLINE [Concomitant]
     Active Substance: AMITRIPTYLINE
  2. AMIODARONE [Suspect]
     Active Substance: AMIODARONE
  3. AZITHROMYCINE [Suspect]
     Active Substance: AZITHROMYCIN DIHYDRATE

REACTIONS (5)
  - Torsade de pointes [None]
  - Hypertensive crisis [None]
  - Hyperkalaemia [None]
  - Pulmonary oedema [None]
  - Acute respiratory failure [None]

NARRATIVE: CASE EVENT DATE: 20160327
